FAERS Safety Report 22074199 (Version 2)
Quarter: 2023Q4

REPORT INFORMATION
  Report Type: Spontaneous
  Country: PK (occurrence: PK)
  Receive Date: 20230308
  Receipt Date: 20231006
  Transmission Date: 20240110
  Serious: Yes (Death, Hospitalization, Other)
  Sender: FDA-Public Use
  Company Number: PK-BAYER-2023A029748

PATIENT
  Age: 57 Year
  Sex: Female

DRUGS (1)
  1. ULTRAVIST [Suspect]
     Active Substance: IOPROMIDE
     Indication: Angiogram
     Dosage: 90 ML, ONCE
     Route: 042

REACTIONS (5)
  - Heart rate decreased [Fatal]
  - Hypotension [Fatal]
  - Loss of consciousness [Fatal]
  - Peripheral coldness [Fatal]
  - Syncope [Fatal]

NARRATIVE: CASE EVENT DATE: 20230227
